FAERS Safety Report 4521072-X (Version None)
Quarter: 2004Q4

REPORT INFORMATION
  Report Type: 
  Country: None (occurrence: None)
  Receive Date: 20041203
  Receipt Date: 20041130
  Transmission Date: 20050328
  Serious: Yes (Hospitalization, Other)
  Sender: FDA-Public Use
  Company Number: NLWYE245730NOV04

PATIENT
  Age: 25 Year
  Sex: Female

DRUGS (3)
  1. EFFEXOR [Suspect]
     Dosage: 75 MG 1X PER 1 DAY
  2. LEPONEX (CLOZAPINE, , 0) [Suspect]
     Indication: SCHIZOPHRENIA
     Dosage: 50 MG 3X PER 1 DAY
     Dates: start: 20040201, end: 20040310
  3. NOZINAN (LEVOMEPROMAZINE) [Concomitant]

REACTIONS (2)
  - DRUG INTERACTION [None]
  - ILEUS PARALYTIC [None]
